FAERS Safety Report 18087297 (Version 1)
Quarter: 2020Q3

REPORT INFORMATION
  Report Type: Spontaneous
  Country: CN (occurrence: CN)
  Receive Date: 20200729
  Receipt Date: 20200729
  Transmission Date: 20201103
  Serious: Yes (Other)
  Sender: FDA-Public Use
  Company Number: CN-SUN PHARMACEUTICAL INDUSTRIES LTD-2019R1-214341

PATIENT
  Age: 53 Year
  Sex: Male

DRUGS (3)
  1. ERLOTINIB [Suspect]
     Active Substance: ERLOTINIB
     Indication: SMALL CELL LUNG CANCER
     Dosage: 150 MILLIGRAM, DAILY
     Route: 048
  2. CISPLATIN. [Suspect]
     Active Substance: CISPLATIN
     Indication: SMALL CELL LUNG CANCER
     Dosage: 40 MILLIGRAM/ ON DAYS 1?3, ONCE EVERY 3 WEEKS
     Route: 042
  3. ETOPOSIDE. [Suspect]
     Active Substance: ETOPOSIDE
     Indication: SMALL CELL LUNG CANCER
     Dosage: 100 MILLIGRAM/ DAY 1?5
     Route: 042

REACTIONS (2)
  - Malignant transformation [Unknown]
  - Neoplasm progression [Unknown]
